FAERS Safety Report 4434315-8 (Version None)
Quarter: 2004Q3

REPORT INFORMATION
  Report Type: 
  Country: None (occurrence: None)
  Receive Date: 20040825
  Receipt Date: 20040810
  Transmission Date: 20050211
  Serious: Yes (Hospitalization)
  Sender: FDA-Public Use
  Company Number: CIP95000014

PATIENT
  Age: 52 Year
  Sex: Female

DRUGS (8)
  1. FURADANTIN [Suspect]
     Indication: URINARY TRACT DISORDER
     Dosage: OFF AND ON, ORAL
     Route: 048
     Dates: start: 19671201, end: 19690628
  2. PHENYLBUTAZONE (PHENYLBUTAZONE) [Concomitant]
  3. BENADRYL (SODIUM CITRATE) [Concomitant]
  4. MANDRAX (METHAQUALONE) [Concomitant]
  5. POTASSIUM CITRATE [Concomitant]
  6. SODIUM BICARBONATE IN PLASTIC CONTAINER [Concomitant]
  7. CARBITRAL (PHENOBARBITAL SODIUM CARBROMAL) [Concomitant]
  8. STELAZINE [Concomitant]

REACTIONS (8)
  - BRONCHITIS HAEMOPHILUS [None]
  - LETHARGY [None]
  - MYALGIA [None]
  - NERVOUS SYSTEM DISORDER [None]
  - NEUROPATHY [None]
  - PRODUCTIVE COUGH [None]
  - SOMNOLENCE [None]
  - WEIGHT DECREASED [None]
